FAERS Safety Report 24061356 (Version 1)
Quarter: 2024Q3

REPORT INFORMATION
  Report Type: Spontaneous
  Country: US (occurrence: None)
  Receive Date: 20240708
  Receipt Date: 20240708
  Transmission Date: 20241016
  Serious: No
  Sender: ASTRAZENECA
  Company Number: 2024A150780

PATIENT
  Sex: Female

DRUGS (4)
  1. FASLODEX [Suspect]
     Active Substance: FULVESTRANT
     Route: 030
  2. IBRANCE [Suspect]
     Active Substance: PALBOCICLIB
     Route: 048
     Dates: start: 20200312, end: 20231221
  3. IBRANCE [Suspect]
     Active Substance: PALBOCICLIB
     Route: 048
     Dates: start: 20240627
  4. QUETIAPINE [Suspect]
     Active Substance: QUETIAPINE
     Dosage: 100.0MG UNKNOWN
     Route: 048

REACTIONS (3)
  - Immune system disorder [Recovered/Resolved]
  - Cellulitis [Recovered/Resolved]
  - Intentional dose omission [Recovered/Resolved]
